FAERS Safety Report 10037070 (Version 1)
Quarter: 2014Q1

REPORT INFORMATION
  Report Type: Spontaneous
  Country: CL (occurrence: CL)
  Receive Date: 20140326
  Receipt Date: 20140326
  Transmission Date: 20141002
  Serious: Yes (Death)
  Sender: FDA-Public Use
  Company Number: CL-BRISTOL-MYERS SQUIBB COMPANY-20543450

PATIENT
  Age: 54 Year
  Sex: 0

DRUGS (1)
  1. SPRYCEL [Suspect]

REACTIONS (1)
  - Death [Fatal]
